FAERS Safety Report 7903452-5 (Version None)
Quarter: 2011Q4

REPORT INFORMATION
  Report Type: 
  Country: None (occurrence: None)
  Receive Date: 20111108
  Receipt Date: 20111108
  Transmission Date: 20120403
  Serious: No
  Sender: FDA-Public Use
  Company Number: None

PATIENT
  Age: 80 Year
  Sex: Female
  Weight: 58.0604 kg

DRUGS (2)
  1. ALPRAZOLAM [Suspect]
     Indication: ANXIETY
     Dosage: 0.125 MG. BID MOUTH DAILY
     Route: 048
  2. ALPRAZOLAM [Suspect]
     Indication: INSOMNIA
     Dosage: 0.125 MG. BID MOUTH DAILY
     Route: 048

REACTIONS (4)
  - NO THERAPEUTIC RESPONSE [None]
  - PRODUCT SUBSTITUTION ISSUE [None]
  - ANXIETY [None]
  - CONDITION AGGRAVATED [None]
